FAERS Safety Report 24408108 (Version 2)
Quarter: 2024Q4

REPORT INFORMATION
  Report Type: Spontaneous
  Country: US (occurrence: US)
  Receive Date: 20241007
  Receipt Date: 20241011
  Transmission Date: 20250115
  Serious: No
  Sender: PFIZER
  Company Number: US-PFIZER INC-202400267858

PATIENT
  Sex: Male

DRUGS (1)
  1. CIBINQO [Suspect]
     Active Substance: ABROCITINIB
     Indication: Eczema
     Dosage: UNK

REACTIONS (6)
  - Skin disorder [Recovered/Resolved]
  - Skin hypertrophy [Recovered/Resolved]
  - Skin exfoliation [Recovered/Resolved]
  - Wound [Recovered/Resolved]
  - Blister [Unknown]
  - Condition aggravated [Recovered/Resolved]

NARRATIVE: CASE EVENT DATE: 20240101
